FAERS Safety Report 8428474-X (Version None)
Quarter: 2012Q2

REPORT INFORMATION
  Report Type: 
  Country: None (occurrence: None)
  Receive Date: 20120612
  Receipt Date: 20120606
  Transmission Date: 20120825
  Serious: No
  Sender: FDA-Public Use
  Company Number: US-PFIZER INC-2012118919

PATIENT
  Sex: Male
  Weight: 66.213 kg

DRUGS (6)
  1. AMLODIPINE [Concomitant]
     Dosage: 10 MG, UNK
  2. ATORVASTATIN [Concomitant]
     Dosage: UNK
  3. SUTENT [Suspect]
     Indication: RENAL CANCER
     Dosage: 50 MG DAILY X28 DAYS Q 42 DAYS
     Dates: start: 20120510
  4. COUMADIN [Concomitant]
     Dosage: UNK
     Dates: end: 20120420
  5. LOVENOX [Concomitant]
     Dosage: UNK
     Dates: start: 20120101
  6. METOPROLOL SUCCINATE EXTENDED RELEASE [Concomitant]
     Dosage: 50 MG, UNK

REACTIONS (4)
  - CHROMATURIA [None]
  - FATIGUE [None]
  - WEIGHT DECREASED [None]
  - DECREASED APPETITE [None]
